FAERS Safety Report 9495624 (Version 2)
Quarter: 2013Q3

REPORT INFORMATION
  Report Type: Spontaneous
  Country: US (occurrence: US)
  Receive Date: 20130903
  Receipt Date: 20130903
  Transmission Date: 20140515
  Serious: Yes (Hospitalization, Other)
  Sender: FDA-Public Use
  Company Number: US-BAXTER-2013BAX033085

PATIENT
  Age: 52 Year
  Sex: Female

DRUGS (4)
  1. DIANEAL PD2 [Suspect]
     Indication: PERITONEAL DIALYSIS
     Route: 033
     Dates: start: 20130220, end: 201306
  2. DIANEAL PD2 [Suspect]
     Route: 033
     Dates: start: 20130701
  3. DIANEAL PD2 [Suspect]
     Indication: PERITONEAL DIALYSIS
     Route: 033
     Dates: start: 20130220, end: 201306
  4. DIANEAL PD2 [Suspect]
     Route: 033
     Dates: start: 20130701

REACTIONS (3)
  - Pleural effusion [Recovered/Resolved]
  - Peritoneal dialysis complication [Unknown]
  - Pulmonary embolism [Recovered/Resolved]
